FAERS Safety Report 4316873-7 (Version None)
Quarter: 2004Q1

REPORT INFORMATION
  Report Type: 
  Country: None (occurrence: None)
  Receive Date: 20040309
  Receipt Date: 20040116
  Transmission Date: 20041129
  Serious: Yes (Hospitalization)
  Sender: FDA-Public Use
  Company Number: F03200400005

PATIENT
  Age: 72 Year
  Sex: Male

DRUGS (12)
  1. ELOXATIN [Suspect]
     Indication: BILE DUCT CANCER
     Dosage: 130 MG/M2 OTHER - INTRAVENOUS NOS
     Route: 042
     Dates: start: 20040107, end: 20040107
  2. XELODA [Suspect]
     Indication: BILE DUCT CANCER
     Dosage: 1500MG/M2; FREQUENCY: QD FOR 14 DAYS - ORAL
     Route: 048
     Dates: start: 20040107, end: 20040114
  3. DOCUSATE SODIUM [Concomitant]
  4. ANTACID TAB [Concomitant]
  5. FAMOTIDINE [Concomitant]
  6. DIMETICONE [Concomitant]
  7. CALCIUM CARBONATE [Concomitant]
  8. SENNA FRUIT [Concomitant]
  9. ONDANSETRON HCL [Concomitant]
  10. MEGESTROL ACETATE [Concomitant]
  11. ESOMEPRAZOLE [Concomitant]
  12. ANTACID TAB [Concomitant]

REACTIONS (3)
  - ANOREXIA [None]
  - FLUID INTAKE REDUCED [None]
  - HYPERBILIRUBINAEMIA [None]
